FAERS Safety Report 9817300 (Version 1)
Quarter: 2014Q1

REPORT INFORMATION
  Report Type: Report from Study
  Country: US (occurrence: US)
  Receive Date: 20140115
  Receipt Date: 20140115
  Transmission Date: 20141002
  Serious: Yes (Death)
  Sender: FDA-Public Use
  Company Number: US-ROCHE-1333928

PATIENT
  Sex: Male
  Weight: 55.1 kg

DRUGS (15)
  1. AVASTIN [Suspect]
     Indication: COLORECTAL CANCER METASTATIC
     Route: 042
     Dates: start: 20120221
  2. AVASTIN [Suspect]
     Route: 042
     Dates: start: 20120306
  3. FAMOTIDINE [Concomitant]
     Route: 042
  4. PALONOSETRON [Concomitant]
     Route: 042
  5. DEXAMETHASONE [Concomitant]
     Route: 042
  6. LORAZEPAM [Concomitant]
     Route: 048
  7. ATROPINE [Concomitant]
     Route: 040
  8. LEUCOVORIN [Concomitant]
     Route: 042
  9. LEUCOVORIN [Concomitant]
     Route: 042
  10. IRINOTECAN [Concomitant]
     Route: 042
     Dates: start: 20120221
  11. IRINOTECAN [Concomitant]
     Route: 042
     Dates: start: 20120306
  12. 5-FU [Concomitant]
     Route: 042
     Dates: start: 20120221
  13. 5-FU [Concomitant]
     Route: 042
     Dates: start: 20120221
  14. 5-FU [Concomitant]
     Route: 042
     Dates: start: 20120306
  15. 5-FU [Concomitant]
     Route: 042
     Dates: start: 20120306

REACTIONS (1)
  - Death [Fatal]
